FAERS Safety Report 5538361-2 (Version None)
Quarter: 2007Q4

REPORT INFORMATION
  Report Type: 
  Country: None (occurrence: None)
  Receive Date: 20071205
  Receipt Date: 20071126
  Transmission Date: 20080405
  Serious: Yes (Disabling)
  Sender: FDA-Public Use
  Company Number: 167-20785-07111704

PATIENT
  Age: 77 Year
  Sex: Male

DRUGS (6)
  1. THALIDOMIDE [Suspect]
     Indication: MULTIPLE MYELOMA
     Dosage: 100 MG, DAILY, ORAL
     Route: 048
     Dates: start: 20050131
  2. BONEFOS (CLODRONATE DISODIUM) [Concomitant]
  3. ATENOLOL [Concomitant]
  4. FUROSEMIDE [Concomitant]
  5. AMLODIPINE [Concomitant]
  6. WARFARIN SODIUM [Concomitant]

REACTIONS (2)
  - AGEUSIA [None]
  - ANOSMIA [None]
